FAERS Safety Report 8962732 (Version 2)
Quarter: 2012Q4

REPORT INFORMATION
  Report Type: 
  Country: FR (occurrence: FR)
  Receive Date: 20121214
  Receipt Date: 20121228
  Transmission Date: 20130627
  Serious: Yes (Hospitalization)
  Sender: FDA-Public Use
  Company Number: FR-JNJFOC-20121204470

PATIENT
  Age: 0 None
  Sex: Female
  Weight: 3.2 kg

DRUGS (1)
  1. IXPRIM [Suspect]
     Indication: FOETAL EXPOSURE DURING PREGNANCY
     Dosage: 8-10 DF
     Route: 064
     Dates: start: 201112, end: 20120917

REACTIONS (2)
  - Drug withdrawal syndrome neonatal [Recovered/Resolved]
  - Foetal exposure during pregnancy [Recovered/Resolved]
